FAERS Safety Report 19035545 (Version 1)
Quarter: 2021Q1

REPORT INFORMATION
  Report Type: Spontaneous
  Country: US (occurrence: US)
  Receive Date: 20210320
  Receipt Date: 20210320
  Transmission Date: 20210420
  Serious: Yes (Hospitalization, Other)
  Sender: FDA-Public Use
  Company Number: US-TAKEDA-2021TUS015992

PATIENT
  Age: 2 Day
  Sex: Male

DRUGS (2)
  1. CEPROTIN [Suspect]
     Active Substance: PROTEIN C
     Indication: PROTEIN C DEFICIENCY
     Dosage: 66 INTERNATIONAL UNIT/KILOGRAM, Q12H
     Route: 065
  2. ENOXAPARIN [Concomitant]
     Active Substance: ENOXAPARIN
     Dosage: UNK
     Route: 065

REACTIONS (1)
  - Hepatic haematoma [Unknown]
